FAERS Safety Report 23590161 (Version 2)
Quarter: 2024Q1

REPORT INFORMATION
  Report Type: Spontaneous
  Country: JP (occurrence: JP)
  Receive Date: 20240304
  Receipt Date: 20240313
  Transmission Date: 20240410
  Serious: Yes (Other)
  Sender: FDA-Public Use
  Company Number: JP-TEVA-VS-3162978

PATIENT
  Age: 86 Year
  Sex: Female

DRUGS (2)
  1. RAMELTEON [Suspect]
     Active Substance: RAMELTEON
     Indication: Product used for unknown indication
     Dosage: DOSAGE IS UNKNOWN, TAKEDA TEVA
     Route: 048
     Dates: start: 20240119
  2. PROCATEROL HYDROCHLORIDE [Concomitant]
     Active Substance: PROCATEROL HYDROCHLORIDE
     Dosage: DOSAGE IS UNKNOWN
     Route: 065

REACTIONS (4)
  - Pharyngeal stenosis [Not Recovered/Not Resolved]
  - Asthma [Unknown]
  - Eczema [Unknown]
  - Cyanosis [Unknown]

NARRATIVE: CASE EVENT DATE: 20240201
